FAERS Safety Report 5053318-6 (Version None)
Quarter: 2006Q3

REPORT INFORMATION
  Report Type: 
  Country: None (occurrence: None)
  Receive Date: 20060718
  Receipt Date: 20060223
  Transmission Date: 20061208
  Serious: Yes (Hospitalization)
  Sender: FDA-Public Use
  Company Number: JP-SP-2006-00458

PATIENT
  Age: 59 Year
  Sex: Male

DRUGS (7)
  1. IMMUCYST [Suspect]
     Indication: CARCINOMA IN SITU OF BLADDER
     Route: 043
     Dates: start: 20060117, end: 20060221
  2. ENOXACIN [Concomitant]
     Route: 048
     Dates: start: 20060124, end: 20060131
  3. CERNITIN POLLEN EXTRACT [Concomitant]
     Route: 048
     Dates: start: 20060124, end: 20060131
  4. FAMOTIDINE [Concomitant]
     Route: 048
     Dates: start: 20060124, end: 20060131
  5. TAMSULOSIN HYDROCHLORIDE [Concomitant]
     Route: 048
     Dates: start: 20060124, end: 20060220
  6. LOXOPROFEN SODIUM [Concomitant]
     Route: 048
     Dates: start: 20060124, end: 20060220
  7. DICLOFENAC SODIUM [Concomitant]
     Route: 048
     Dates: start: 20060131, end: 20060220

REACTIONS (15)
  - ANAPHYLACTIC SHOCK [None]
  - ARTHRITIS [None]
  - BACK PAIN [None]
  - CONJUNCTIVITIS [None]
  - CYSTITIS [None]
  - HEPATITIS [None]
  - JOINT SWELLING [None]
  - KERATITIS [None]
  - LIVER FUNCTION TEST ABNORMAL [None]
  - PAIN [None]
  - PRURITUS GENERALISED [None]
  - REITER'S SYNDROME [None]
  - RENAL IMPAIRMENT [None]
  - URETHRAL PAIN [None]
  - URETHRITIS [None]
